FAERS Safety Report 6510617-6 (Version None)
Quarter: 2009Q4

REPORT INFORMATION
  Report Type: 
  Country: None (occurrence: None)
  Receive Date: 20091222
  Receipt Date: 20090105
  Transmission Date: 20100525
  Serious: No
  Sender: FDA-Public Use
  Company Number: US-ASTRAZENECA-2009UW00305

PATIENT
  Age: 63 Year
  Sex: Female

DRUGS (4)
  1. CRESTOR [Suspect]
     Indication: OVERWEIGHT
     Route: 048
     Dates: start: 20081205
  2. CRESTOR [Suspect]
     Indication: HIGH FAT DIET
     Route: 048
     Dates: start: 20081205
  3. LASIX [Concomitant]
  4. LOTENSIN [Concomitant]

REACTIONS (1)
  - WEIGHT INCREASED [None]
